FAERS Safety Report 6740858-4 (Version None)
Quarter: 2010Q2

REPORT INFORMATION
  Report Type: 
  Country: None (occurrence: None)
  Receive Date: 20100526
  Receipt Date: 20100518
  Transmission Date: 20101027
  Serious: Yes (Hospitalization)
  Sender: FDA-Public Use
  Company Number: 2007BI015996

PATIENT
  Age: 59 Year
  Sex: Female
  Weight: 68 kg

DRUGS (2)
  1. TYSABRI [Suspect]
     Indication: MULTIPLE SCLEROSIS
     Route: 042
     Dates: start: 20061120, end: 20070607
  2. TYSABRI [Suspect]
     Route: 042
     Dates: start: 20080313

REACTIONS (4)
  - ASTHENIA [None]
  - DIVERTICULITIS [None]
  - MALAISE [None]
  - MULTIPLE SCLEROSIS [None]
